FAERS Safety Report 4764772-9 (Version None)
Quarter: 2005Q3

REPORT INFORMATION
  Report Type: 
  Country: None (occurrence: None)
  Receive Date: 20050907
  Receipt Date: 20050830
  Transmission Date: 20060218
  Serious: Yes (Death)
  Sender: FDA-Public Use
  Company Number: 163-20785-05080082

PATIENT
  Age: 68 Year
  Sex: Male

DRUGS (4)
  1. THALOMID [Suspect]
     Indication: MULTIPLE MYELOMA
     Dosage: 50 MG, BID, ORAL
     Route: 048
     Dates: start: 20050609, end: 20050627
  2. DECADRON [Concomitant]
  3. PROCRIT [Concomitant]
  4. PAMIDRONATE DISODIUM [Concomitant]

REACTIONS (3)
  - MALIGNANT NEOPLASM PROGRESSION [None]
  - MULTIPLE MYELOMA [None]
  - SUDDEN DEATH [None]
